FAERS Safety Report 6097272-7 (Version None)
Quarter: 2009Q1

REPORT INFORMATION
  Report Type: 
  Country: None (occurrence: None)
  Receive Date: 20090225
  Receipt Date: 20090212
  Transmission Date: 20090719
  Serious: Yes (Hospitalization)
  Sender: FDA-Public Use
  Company Number: PHO-2009-002

PATIENT
  Sex: Male

DRUGS (2)
  1. PHOTOFRIN [Suspect]
     Dosage: 2 MG/KG IV
     Route: 042
     Dates: start: 20090210
  2. NEXIUM [Concomitant]

REACTIONS (4)
  - BRADYCARDIA [None]
  - HYPOTENSION [None]
  - INFUSION RELATED REACTION [None]
  - SYNCOPE [None]
